FAERS Safety Report 4426787-X (Version None)
Quarter: 2004Q3

REPORT INFORMATION
  Report Type: 
  Country: None (occurrence: None)
  Receive Date: 20040816
  Receipt Date: 20040426
  Transmission Date: 20050211
  Serious: Yes (Hospitalization)
  Sender: FDA-Public Use
  Company Number: JP-BRISTOL-MYERS SQUIBB COMPANY-12582292

PATIENT
  Age: 69 Year
  Sex: Male

DRUGS (8)
  1. GATIFLO TABS [Suspect]
     Indication: BRONCHITIS CHRONIC
     Route: 048
     Dates: start: 20031229, end: 20040105
  2. AMINOPHYLLINE [Suspect]
     Indication: BRONCHITIS CHRONIC
     Route: 041
     Dates: start: 20040103, end: 20040106
  3. CIMETIDINE [Suspect]
     Indication: GASTRITIS
     Route: 048
     Dates: start: 19910323, end: 20040128
  4. GASMOTIN [Concomitant]
     Route: 048
  5. CLEANAL [Concomitant]
     Route: 048
  6. MAXIPIME [Concomitant]
     Route: 041
     Dates: start: 20040103, end: 20040107
  7. NOVAMIN [Concomitant]
     Route: 048
  8. PRIMPERAN INJ [Concomitant]
     Route: 041
     Dates: start: 20031229, end: 20040122

REACTIONS (1)
  - ATRIAL FLUTTER [None]
